FAERS Safety Report 5725939-6 (Version None)
Quarter: 2008Q2

REPORT INFORMATION
  Report Type: 
  Country: None (occurrence: None)
  Receive Date: 20080501
  Receipt Date: 20080501
  Transmission Date: 20081010
  Serious: No
  Sender: FDA-Public Use
  Company Number: None

PATIENT
  Age: 39 Year
  Sex: Male

DRUGS (6)
  1. INTERLEUKEN 21 [Suspect]
     Dates: start: 20050103, end: 20050311
  2. VICODIN [Concomitant]
  3. MOTRIN [Concomitant]
  4. STOOL SOFTENERS [Concomitant]
  5. MILK OF MAGNESIA [Concomitant]
  6. ESSIAC TEA [Concomitant]

REACTIONS (4)
  - COAGULOPATHY [None]
  - HEPATIC NECROSIS [None]
  - HEPATOCELLULAR INJURY [None]
  - HEPATOTOXICITY [None]
